FAERS Safety Report 7549025-8 (Version None)
Quarter: 2011Q2

REPORT INFORMATION
  Report Type: 
  Country: None (occurrence: None)
  Receive Date: 20110615
  Receipt Date: 20110609
  Transmission Date: 20111010
  Serious: Yes (Disabling)
  Sender: FDA-Public Use
  Company Number: MX-ROCHE-781463

PATIENT
  Sex: Female
  Weight: 63 kg

DRUGS (2)
  1. BONIVA [Suspect]
     Indication: OSTEOPENIA
     Route: 048
     Dates: start: 20110607
  2. GLIMETAL [Concomitant]
     Indication: DIABETES MELLITUS
     Dosage: FREQUENCY: 1/4 BID [1/4-1/4-0]
     Route: 048
     Dates: start: 20100101

REACTIONS (4)
  - TOOTHACHE [None]
  - ARTHRALGIA [None]
  - MUSCULOSKELETAL PAIN [None]
  - MUSCLE SPASMS [None]
